FAERS Safety Report 6031953-6 (Version None)
Quarter: 2009Q1

REPORT INFORMATION
  Report Type: 
  Country: None (occurrence: None)
  Receive Date: 20090108
  Receipt Date: 20090107
  Transmission Date: 20090719
  Serious: Yes (Disabling)
  Sender: FDA-Public Use
  Company Number: CH-PFIZER INC-2009152210

PATIENT

DRUGS (8)
  1. SORTIS [Suspect]
     Dosage: 40 MG, 1X/DAY
     Route: 048
     Dates: start: 20080504
  2. ENALAPRIL MALEATE [Suspect]
     Route: 048
     Dates: start: 20080504, end: 20080504
  3. BISOPROLOL FUMARATE [Suspect]
     Dosage: 50 MG, 1X/DAY
     Route: 048
     Dates: start: 20080504
  4. HEPARIN SODIUM [Suspect]
     Dosage: UNK
     Route: 042
     Dates: start: 20080504
  5. INSULIN ACTRAPID HUMAN [Suspect]
     Dosage: UNK
     Route: 058
     Dates: start: 20080504
  6. RANITIDINE [Suspect]
     Dosage: 150 MG, 1X/DAY
     Route: 048
     Dates: start: 20080504
  7. LEXOTANIL [Suspect]
     Dosage: 1.5 MG, 2X/DAY
     Route: 048
     Dates: start: 20080504
  8. LACTITOL [Suspect]
     Dosage: 20 ML, 1X/DAY
     Route: 048
     Dates: start: 20080504

REACTIONS (2)
  - ANGIOEDEMA [None]
  - RASH MACULO-PAPULAR [None]
